FAERS Safety Report 16637898 (Version 2)
Quarter: 2019Q3

REPORT INFORMATION
  Report Type: Report from Study
  Country: KR (occurrence: KR)
  Receive Date: 20190726
  Receipt Date: 20190826
  Transmission Date: 20191004
  Serious: Yes (Hospitalization, Other)
  Sender: FDA-Public Use
  Company Number: KR-009507513-1907KOR012833

PATIENT
  Sex: Male

DRUGS (16)
  1. PEMBROLIZUMAB. [Suspect]
     Active Substance: PEMBROLIZUMAB
     Indication: GALLBLADDER CANCER
     Dosage: QUANTITY: 2, DAYS: 1
     Dates: start: 20190710, end: 20190710
  2. MAGO (MAGNESIUM OXIDE) [Concomitant]
     Dosage: QUANTITY: 3, DAYS: 27
     Route: 048
     Dates: start: 20190709, end: 20190715
  3. CEFOTAXIME SODIUM [Concomitant]
     Active Substance: CEFOTAXIME SODIUM
     Dosage: QUANTITY: 2, DAYS: 1
     Dates: start: 20190708, end: 20190708
  4. OPTIRAY [Concomitant]
     Active Substance: IOVERSOL
     Dosage: QUANTITY: 1, DAYS: 1
     Dates: start: 20190710, end: 20190710
  5. URSA TABLETS [Concomitant]
     Dosage: QUANTITY :2, DAYS: 1
     Route: 048
     Dates: start: 20190708, end: 20190708
  6. MAGO (MAGNESIUM OXIDE) [Concomitant]
     Dosage: QUANTITY: 2, DAYS: 1
     Route: 048
     Dates: start: 20190708, end: 20190708
  7. APETROL (MEGESTROL ACETATE) [Concomitant]
     Dosage: QUANTITY: 1, DAYS: 27
     Route: 048
     Dates: start: 20190708, end: 20190715
  8. NORVASC [Concomitant]
     Active Substance: AMLODIPINE BESYLATE
     Dosage: QUANTITY: 1, DAYS: 28
     Route: 048
     Dates: start: 20190708, end: 20190715
  9. TARGIN [Concomitant]
     Active Substance: NALOXONE HYDROCHLORIDE\OXYCODONE HYDROCHLORIDE
     Dosage: QUANTITY: 2, DAYS: 27
     Route: 048
     Dates: start: 20190708, end: 20190715
  10. SODIUM CHLORIDE. [Concomitant]
     Active Substance: SODIUM CHLORIDE
     Dosage: QUANTITY: 1, DAYS: 1 (PRESENTATION PER 50ML)
     Dates: start: 20190710, end: 20190710
  11. CEFOTAXIME SODIUM [Concomitant]
     Active Substance: CEFOTAXIME SODIUM
     Dosage: QUANTITY: 3, DAYS: 3
     Dates: start: 20190709, end: 20190711
  12. DUPHALAC [Concomitant]
     Active Substance: LACTULOSE
     Dosage: QUANTITY: 1, DAYS: 28
     Route: 048
     Dates: start: 20190708, end: 20190715
  13. URSA TABLETS [Concomitant]
     Dosage: QUANTITY :3, DAYS: 27
     Route: 048
     Dates: start: 20190709, end: 20190715
  14. TARGIN [Concomitant]
     Active Substance: NALOXONE HYDROCHLORIDE\OXYCODONE HYDROCHLORIDE
     Dosage: QUANTITY: 1, DAYS: 1
     Route: 048
     Dates: start: 20190709, end: 20190709
  15. PEMBROLIZUMAB. [Suspect]
     Active Substance: PEMBROLIZUMAB
     Dosage: QUANTITY: 2, DAYS: 1
     Dates: start: 20190805, end: 20190805
  16. VENITOL [Concomitant]
     Dosage: QUANTITY: 2, DAYS: 28
     Route: 048
     Dates: start: 20190708, end: 20190715

REACTIONS (7)
  - Adverse event [Unknown]
  - Cholangiostomy [Unknown]
  - Biloma [Unknown]
  - Adverse event [Unknown]
  - Packed red blood cell transfusion [Unknown]
  - Product use in unapproved indication [Unknown]
  - Packed red blood cell transfusion [Unknown]

NARRATIVE: CASE EVENT DATE: 201907
